FAERS Safety Report 7365980-3 (Version None)
Quarter: 2011Q1

REPORT INFORMATION
  Report Type: 
  Country: None (occurrence: None)
  Receive Date: 20110322
  Receipt Date: 20110314
  Transmission Date: 20110831
  Serious: Yes (Hospitalization)
  Sender: FDA-Public Use
  Company Number: US-US-EMD SERONO, INC.-232067J10USA

PATIENT
  Sex: Female
  Weight: 70 kg

DRUGS (3)
  1. REBIF [Suspect]
     Indication: MULTIPLE SCLEROSIS
     Route: 058
     Dates: start: 20090819, end: 20110101
  2. SOLU-MEDROL [Suspect]
     Indication: MULTIPLE SCLEROSIS RELAPSE
     Route: 042
     Dates: start: 20100201, end: 20100201
  3. ATENOLOL [Concomitant]
     Indication: HYPERTENSION
     Dates: start: 20030101

REACTIONS (6)
  - PANCREAS INFECTION [None]
  - BLOOD CHOLESTEROL INCREASED [None]
  - MULTIPLE SCLEROSIS RELAPSE [None]
  - NAUSEA [None]
  - MUSCULOSKELETAL STIFFNESS [None]
  - LIVER FUNCTION TEST ABNORMAL [None]
